FAERS Safety Report 8984992 (Version 2)
Quarter: 2013Q1

REPORT INFORMATION
  Report Type: Report from Study
  Country: DE (occurrence: DE)
  Receive Date: 20121226
  Receipt Date: 20130117
  Transmission Date: 20140127
  Serious: Yes (Hospitalization)
  Sender: FDA-Public Use
  Company Number: DE-AMGEN-DEUCT2012083058

PATIENT
  Age: 74 Year
  Sex: Female
  Weight: 70 kg

DRUGS (11)
  1. ETANERCEPT [Suspect]
     Indication: RHEUMATOID ARTHRITIS
     Dosage: 50 MG, QWK
     Dates: start: 20111215, end: 20121213
  2. PREDNISOLON                        /00016201/ [Concomitant]
     Indication: RHEUMATOID ARTHRITIS
     Dosage: 7.5 MG, 1X/DAY
     Route: 048
     Dates: start: 201006
  3. PREDNISOLON                        /00016201/ [Concomitant]
     Dosage: 5 MG, 1X/DAY
     Route: 048
     Dates: start: 201112
  4. PREDNISOLON                        /00016201/ [Concomitant]
     Dosage: 2.5 MG, 1X/DAY
     Route: 048
     Dates: start: 201201
  5. PREDNISOLON                        /00016201/ [Concomitant]
     Dosage: 5 MG, 1X/DAY
     Route: 048
     Dates: start: 201209
  6. PREDNISOLON                        /00016201/ [Concomitant]
     Dosage: 7.5 MG, 1X/DAY  UNK
     Route: 048
     Dates: start: 201212
  7. NITRENDIPINE [Concomitant]
     Indication: HYPERTENSION
     Dosage: 10 MG, 2X/DAY
     Route: 048
  8. ENALAPRIL [Concomitant]
     Indication: HYPERTENSION
     Dosage: 20 MG, 2X/DAY
     Route: 048
  9. PANTOPRAZOL [Concomitant]
     Indication: PROPHYLAXIS AGAINST GASTROINTESTINAL ULCER
     Dosage: 20 MG, 1X/DAY
     Route: 048
  10. CALCIUM WITH VITAMIN D             /01233101/ [Concomitant]
     Indication: OSTEOPOROSIS PROPHYLAXIS
     Dosage: 500 MG CALCIUM + 400 IE VITAMIN D
     Route: 048
     Dates: start: 201006
  11. ISOZID-COMPOSITUM [Concomitant]
     Indication: TUBERCULOSIS
     Dosage: 300 MG, 1X/DAY
     Route: 048
     Dates: start: 201111

REACTIONS (1)
  - Breast cancer [Not Recovered/Not Resolved]
